FAERS Safety Report 25593145 (Version 4)
Quarter: 2025Q4

REPORT INFORMATION
  Report Type: Spontaneous
  Country: EU (occurrence: EU)
  Receive Date: 20250722
  Receipt Date: 20251111
  Transmission Date: 20260118
  Serious: Yes (Other)
  Sender: ALEXION PHARMACEUTICALS
  Company Number: EU-AstraZeneca-CH-00905240AM

PATIENT
  Sex: Female

DRUGS (3)
  1. IMFINZI [Suspect]
     Active Substance: DURVALUMAB
     Indication: Endometrial cancer
     Dosage: UNK
     Route: 065
  2. LYNPARZA [Suspect]
     Active Substance: OLAPARIB
     Indication: Endometrial cancer
     Dosage: 400 MILLIGRAM
     Route: 065
  3. LYNPARZA [Suspect]
     Active Substance: OLAPARIB
     Dosage: 400 MILLIGRAM, QD
     Route: 065
     Dates: start: 20250904

REACTIONS (4)
  - Hypothyroidism [Unknown]
  - Hyperthyroidism [Unknown]
  - Leukopenia [Unknown]
  - Rash maculo-papular [Unknown]
